FAERS Safety Report 5266147-5 (Version None)
Quarter: 2007Q1

REPORT INFORMATION
  Report Type: 
  Country: None (occurrence: None)
  Receive Date: 20070305
  Receipt Date: 20070216
  Transmission Date: 20070707
  Serious: Yes (Other)
  Sender: FDA-Public Use
  Company Number: B0459802A

PATIENT
  Sex: 0

DRUGS (1)
  1. PHENOXYMETHYL PENICILLIN [Suspect]

REACTIONS (2)
  - DRUG ERUPTION [None]
  - PEMPHIGOID [None]
